FAERS Safety Report 9841195 (Version 1)
Quarter: 2014Q1

REPORT INFORMATION
  Report Type: Spontaneous
  Country: US (occurrence: US)
  Receive Date: 20140124
  Receipt Date: 20140124
  Transmission Date: 20141002
  Serious: Yes (Death)
  Sender: FDA-Public Use
  Company Number: US-PFIZER INC-2014018999

PATIENT
  Age: 80 Year
  Sex: Male

DRUGS (1)
  1. VFEND [Suspect]
     Indication: OSTEOMYELITIS CHRONIC
     Dosage: 200 MG, 2X/DAY

REACTIONS (2)
  - Pneumonia [Fatal]
  - Blood disorder [Fatal]
